FAERS Safety Report 21843869 (Version 1)
Quarter: 2023Q1

REPORT INFORMATION
  Report Type: Spontaneous
  Country: US (occurrence: None)
  Receive Date: 20230109
  Receipt Date: 20230109
  Transmission Date: 20230417
  Serious: Yes (Life-Threatening, Hospitalization)
  Sender: FDA-Public Use
  Company Number: None

PATIENT
  Age: 83 Year
  Sex: Female
  Weight: 60.4 kg

DRUGS (3)
  1. GOLYTELY [Suspect]
     Active Substance: POLYETHYLENE GLYCOL 3350\POTASSIUM CHLORIDE\SODIUM BICARBONATE\SODIUM CHLORIDE\SODIUM SULFATE
     Indication: Colonoscopy
     Dosage: FREQUENCY: ONCE?
     Route: 048
     Dates: start: 20230108, end: 20230108
  2. LISINOPRIL [Concomitant]
     Active Substance: LISINOPRIL
  3. calcium carb, lactat-vitamin D3 200 mg calcium- 250 unit tablet [Concomitant]

REACTIONS (4)
  - Lethargy [None]
  - Confusional state [None]
  - Blood sodium decreased [None]
  - Blood potassium [None]

NARRATIVE: CASE EVENT DATE: 20230109
